FAERS Safety Report 9191635 (Version 2)
Quarter: 2013Q4

REPORT INFORMATION
  Report Type: Report from Study
  Country: US (occurrence: US)
  Receive Date: 20130326
  Receipt Date: 20131216
  Transmission Date: 20140711
  Serious: Yes (Hospitalization, Other)
  Sender: FDA-Public Use
  Company Number: US-ACTELION-A-US2013-80863

PATIENT
  Age: 74 Year
  Sex: Female

DRUGS (13)
  1. TRACLEER [Suspect]
     Indication: PULMONARY ARTERIAL HYPERTENSION
     Dosage: 125 MG BID
     Route: 048
     Dates: start: 200908
  2. FOSAMAX [Concomitant]
     Dosage: 10 MG, Q1WEEK
  3. XANAX [Concomitant]
     Dosage: 1 MG, QD
  4. CALCIUM [Concomitant]
     Dosage: 500 MG, UNK
  5. NEXIUM [Concomitant]
     Dosage: 40 MG, UNK
  6. IRON [Concomitant]
     Dosage: 325 MG, BID
  7. FLUOXETINE [Concomitant]
     Dosage: 40 MG, QD
  8. PLAQUENIL [Concomitant]
     Dosage: 200 MG, BID
  9. LOPRESSOR [Concomitant]
     Dosage: 12.5 MG, BID
  10. LYRICA [Concomitant]
     Dosage: 25 MG, QD
  11. NORCO [Concomitant]
  12. METOCLOPRAM [Concomitant]
     Dosage: 5 MG, BID
  13. DIOVAN [Concomitant]
     Dosage: 160 MG, QD

REACTIONS (7)
  - Road traffic accident [Recovered/Resolved]
  - Spinal fracture [Recovered/Resolved]
  - Pneumonia [Recovered/Resolved]
  - Pleural effusion [Recovered/Resolved]
  - Dyspnoea [Recovered/Resolved]
  - Dysphagia [Recovering/Resolving]
  - Choking [Recovered/Resolved]
